FAERS Safety Report 12195870 (Version 1)
Quarter: 2016Q1

REPORT INFORMATION
  Report Type: Other
  Country: GB (occurrence: GB)
  Receive Date: 20160321
  Receipt Date: 20160321
  Transmission Date: 20160526
  Serious: Yes (Death, Other)
  Sender: FDA-Public Use
  Company Number: GB-PERRIGO-16GB014241

PATIENT

DRUGS (2)
  1. PARACETAMOL 12063/0006 500 MG [Suspect]
     Active Substance: ACETAMINOPHEN
     Indication: OSTEOPOROSIS
     Dosage: UNK
     Route: 065
  2. LEMSIP [Suspect]
     Active Substance: ACETAMINOPHEN\ASCORBIC ACID\PHENYLEPHRINE HYDROCHLORIDE\SODIUM CITRATE
     Indication: INFLUENZA
     Dosage: UNK
     Route: 065

REACTIONS (9)
  - Somnolence [None]
  - Self-medication [None]
  - Toxicity to various agents [None]
  - Multiple organ dysfunction syndrome [Fatal]
  - Liver disorder [Fatal]
  - Restlessness [Fatal]
  - Hepatic failure [Unknown]
  - Renal failure [Unknown]
  - Overdose [None]

NARRATIVE: CASE EVENT DATE: 20091029
